FAERS Safety Report 8495889-3 (Version None)
Quarter: 2012Q3

REPORT INFORMATION
  Report Type: 
  Country: None (occurrence: None)
  Receive Date: 20120709
  Receipt Date: 20120703
  Transmission Date: 20120928
  Serious: Yes (Other)
  Sender: FDA-Public Use
  Company Number: PHHY2012CH039951

PATIENT
  Sex: Female

DRUGS (1)
  1. GILENYA [Suspect]
     Dosage: 0.5 MG, DAILY
     Route: 048
     Dates: start: 20111017

REACTIONS (5)
  - PALPITATIONS [None]
  - TACHYCARDIA [None]
  - CARDIAC FIBRILLATION [None]
  - VENTRICULAR TACHYCARDIA [None]
  - VERTIGO [None]
